FAERS Safety Report 8175546-3 (Version None)
Quarter: 2012Q1

REPORT INFORMATION
  Report Type: 
  Country: None (occurrence: None)
  Receive Date: 20120229
  Receipt Date: 20120221
  Transmission Date: 20120608
  Serious: Yes (Hospitalization, Other)
  Sender: FDA-Public Use
  Company Number: US-ROXANE LABORATORIES, INC.-2012-RO-00690RO

PATIENT
  Age: 69 Year
  Sex: Female

DRUGS (5)
  1. METHOTREXATE [Suspect]
     Indication: TEMPORAL ARTERITIS
  2. AMLODIPINE [Suspect]
  3. OMEPRAZOLE [Suspect]
  4. ASPIRIN [Suspect]
  5. PREDNISONE [Suspect]
     Indication: TEMPORAL ARTERITIS
     Dosage: 50 MG

REACTIONS (3)
  - ORAL CANDIDIASIS [None]
  - PNEUMOCYSTIS JIROVECI PNEUMONIA [None]
  - HERPES ZOSTER [None]
